FAERS Safety Report 12805209 (Version 2)
Quarter: 2016Q4

REPORT INFORMATION
  Report Type: Spontaneous
  Country: US (occurrence: US)
  Receive Date: 20161004
  Receipt Date: 20161004
  Transmission Date: 20170207
  Serious: Yes (Hospitalization)
  Sender: FDA-Public Use
  Company Number: US-SHIRE-US201613403

PATIENT
  Sex: Female
  Weight: 43.99 kg

DRUGS (1)
  1. GATTEX [Suspect]
     Active Substance: TEDUGLUTIDE\WATER
     Indication: SHORT-BOWEL SYNDROME
     Dosage: 0.23 ML, 1X/DAY:QD
     Route: 058
     Dates: start: 201607

REACTIONS (2)
  - Weight decreased [Unknown]
  - Constipation [Unknown]
